FAERS Safety Report 13310526 (Version 1)
Quarter: 2017Q1

REPORT INFORMATION
  Report Type: Spontaneous
  Country: RS (occurrence: RS)
  Receive Date: 20170309
  Receipt Date: 20170309
  Transmission Date: 20170428
  Serious: Yes (Other)
  Sender: FDA-Public Use
  Company Number: RS-PFIZER INC-2017096744

PATIENT
  Age: 41 Year
  Sex: Female

DRUGS (28)
  1. SALAZOPYRIN [Concomitant]
     Active Substance: SULFASALAZINE
     Indication: RHEUMATOID ARTHRITIS
     Dosage: 1 G, UNK
     Dates: start: 201508
  2. METHOTREXATE. [Suspect]
     Active Substance: METHOTREXATE
     Dosage: 17.5 / 15 MG, WEEKLY
     Dates: start: 201206
  3. METHOTREXATE. [Suspect]
     Active Substance: METHOTREXATE
     Dosage: UNK
  4. DIPROPHOS Z INJEKTION [Concomitant]
     Indication: RHEUMATOID ARTHRITIS
     Dosage: UNK UNK, MONTHLY
     Route: 030
     Dates: start: 200903, end: 200909
  5. PRONISON [Concomitant]
     Active Substance: PREDNISONE
     Dosage: 10 UNK, UNK
     Dates: start: 201504
  6. PRONISON [Concomitant]
     Active Substance: PREDNISONE
     Dosage: 15 MG, UNK
     Dates: start: 201601
  7. MABTHERA [Concomitant]
     Active Substance: RITUXIMAB
     Indication: RHEUMATOID ARTHRITIS
     Dosage: 1000 MG, UNK
     Dates: start: 201608
  8. METHOTREXATE. [Suspect]
     Active Substance: METHOTREXATE
     Dosage: 15 MG, WEEKLY
     Dates: start: 200903
  9. RESOCHIN [Concomitant]
     Active Substance: NIFEDIPINE
     Indication: RHEUMATOID ARTHRITIS
     Dosage: 250 MG, UNK
     Dates: start: 200903, end: 200909
  10. DIKLOFENAK [Concomitant]
     Active Substance: DICLOFENAC SODIUM
     Indication: RHEUMATOID ARTHRITIS
     Dosage: UNK UNK, 2X/DAY
     Dates: start: 200904
  11. PRONISON [Concomitant]
     Active Substance: PREDNISONE
     Dosage: 10/15 MG UNKNOWN
     Dates: start: 201506
  12. PRONISON [Concomitant]
     Active Substance: PREDNISONE
     Dosage: 20 MG, UNK
     Dates: start: 201603
  13. FOLNAK [Concomitant]
     Active Substance: FOLIC ACID
     Dosage: 5 MG, UNK
     Dates: start: 200903
  14. DIPROPHOS Z INJEKTION [Concomitant]
     Dosage: UNK
     Route: 030
     Dates: start: 201212
  15. VITAMIN D [Concomitant]
     Active Substance: CHOLECALCIFEROL
     Dosage: UNK
     Dates: start: 200904
  16. CALCIUM [Concomitant]
     Active Substance: CALCIUM
     Dosage: UNK
     Dates: start: 200904
  17. PRONISON [Concomitant]
     Active Substance: PREDNISONE
     Dosage: 15/10MG
     Dates: start: 201510
  18. ENBREL [Suspect]
     Active Substance: ETANERCEPT
     Indication: RHEUMATOID ARTHRITIS
     Dosage: 50 MG, WEEKLY
     Route: 058
     Dates: start: 20090728, end: 201303
  19. ENBREL [Suspect]
     Active Substance: ETANERCEPT
     Dosage: 50MG , UNK
     Route: 058
     Dates: start: 201306, end: 201501
  20. METHOTREXATE. [Suspect]
     Active Substance: METHOTREXATE
     Dosage: 17.5 MG, WEEKLY
     Dates: start: 200904
  21. METHOTREXATE. [Suspect]
     Active Substance: METHOTREXATE
     Dosage: 10 MG, WEEKLY
     Dates: start: 201003
  22. ACTEMRA [Suspect]
     Active Substance: TOCILIZUMAB
     Indication: RHEUMATOID ARTHRITIS
     Dosage: 520 MG, UNK
     Route: 042
     Dates: start: 201502, end: 2016
  23. PRONISON [Concomitant]
     Active Substance: PREDNISONE
     Dosage: 20 MG, UNK
     Dates: start: 201508
  24. METHOTREXATE. [Suspect]
     Active Substance: METHOTREXATE
     Dosage: 15 MG, WEEKLY
     Dates: start: 200911, end: 201001
  25. METHOTREXATE. [Suspect]
     Active Substance: METHOTREXATE
     Dosage: 15 MG, UNK
     Route: 058
     Dates: start: 201601
  26. PRONISON [Concomitant]
     Active Substance: PREDNISONE
     Indication: RHEUMATOID ARTHRITIS
     Dosage: 20 MG, UNK
     Dates: start: 201409
  27. METHOTREXATE. [Suspect]
     Active Substance: METHOTREXATE
     Indication: RHEUMATOID ARTHRITIS
     Dosage: UNK
  28. CONTROLOC [Concomitant]
     Active Substance: PANTOPRAZOLE SODIUM
     Dosage: 20 MG, UNK
     Dates: start: 200904

REACTIONS (11)
  - Injection site pruritus [Recovered/Resolved]
  - Drug intolerance [Unknown]
  - Injection site erythema [Recovered/Resolved]
  - Joint swelling [Unknown]
  - Transaminases increased [Unknown]
  - Asphyxia [Unknown]
  - Eyelid oedema [Unknown]
  - Bone erosion [Unknown]
  - Drug ineffective [Unknown]
  - Hereditary angioedema [Unknown]
  - Lip swelling [Unknown]

NARRATIVE: CASE EVENT DATE: 200909
